FAERS Safety Report 24929361 (Version 1)
Quarter: 2025Q1

REPORT INFORMATION
  Report Type: Spontaneous
  Country: US (occurrence: US)
  Receive Date: 20250205
  Receipt Date: 20250205
  Transmission Date: 20250409
  Serious: Yes (Other)
  Sender: NOVO NORDISK
  Company Number: US-NOVOPROD-1286175

PATIENT
  Age: 47 Year
  Sex: Female

DRUGS (4)
  1. VICTOZA [Suspect]
     Active Substance: LIRAGLUTIDE
     Indication: Type 1 diabetes mellitus
     Route: 058
     Dates: start: 202208, end: 202302
  2. LANTUS [Concomitant]
     Active Substance: INSULIN GLARGINE
     Indication: Product used for unknown indication
     Dosage: 55 IU, QD AT NIGHT
     Dates: start: 2014
  3. HUMALOG [Concomitant]
     Active Substance: INSULIN LISPRO
     Indication: Product used for unknown indication
     Dosage: 15 IU, QD
  4. HUMALOG [Concomitant]
     Active Substance: INSULIN LISPRO

REACTIONS (18)
  - Goitre [Unknown]
  - Thyroid cancer [Unknown]
  - Haematocrit increased [Unknown]
  - Dry mouth [Unknown]
  - Dysphonia [Unknown]
  - Aphonia [Unknown]
  - Dysphagia [Unknown]
  - Oropharyngeal pain [Unknown]
  - Pharyngeal erythema [Unknown]
  - Thyroid hormones increased [Unknown]
  - Abdominal pain upper [Unknown]
  - Abdominal distension [Unknown]
  - Gastrooesophageal reflux disease [Unknown]
  - Rash [Unknown]
  - Blood glucose increased [Unknown]
  - Dizziness [Unknown]
  - Headache [Unknown]
  - Product use in unapproved indication [Unknown]

NARRATIVE: CASE EVENT DATE: 20230203
